FAERS Safety Report 25220835 (Version 2)
Quarter: 2025Q2

REPORT INFORMATION
  Report Type: Spontaneous
  Country: RO (occurrence: RO)
  Receive Date: 20250421
  Receipt Date: 20250605
  Transmission Date: 20250717
  Serious: Yes (Hospitalization, Other)
  Sender: OTSUKA
  Company Number: RO-MEDO2008-002293

PATIENT
  Age: 38 Year
  Sex: Male

DRUGS (2)
  1. ARIPIPRAZOLE [Suspect]
     Active Substance: ARIPIPRAZOLE
     Indication: Schizophrenia
     Route: 065
  2. CLOZAPINE [Suspect]
     Active Substance: CLOZAPINE
     Indication: Schizophrenia
     Dosage: 300 MG, DAILY
     Route: 065

REACTIONS (5)
  - Psychotic symptom [Unknown]
  - Schizophrenia [Unknown]
  - Psychotic disorder [Unknown]
  - Suicidal ideation [Not Recovered/Not Resolved]
  - Condition aggravated [Unknown]
